FAERS Safety Report 7575217-8 (Version None)
Quarter: 2011Q2

REPORT INFORMATION
  Report Type: 
  Country: None (occurrence: None)
  Receive Date: 20110627
  Receipt Date: 20110623
  Transmission Date: 20111010
  Serious: Yes (Death)
  Sender: FDA-Public Use
  Company Number: CHPA2011US08273

PATIENT
  Sex: Male

DRUGS (1)
  1. EX-LAX UNKNOWN [Suspect]
     Indication: CONSTIPATION
     Dosage: UNK , UNK
     Route: 048

REACTIONS (2)
  - GASTRIC CANCER [None]
  - HEPATIC NEOPLASM MALIGNANT [None]
